FAERS Safety Report 4479585-5 (Version None)
Quarter: 2004Q4

REPORT INFORMATION
  Report Type: 
  Country: None (occurrence: None)
  Receive Date: 20041015
  Receipt Date: 20040929
  Transmission Date: 20050328
  Serious: Yes (Hospitalization)
  Sender: FDA-Public Use
  Company Number: DSA_25018_2004

PATIENT
  Age: 52 Year
  Sex: Male

DRUGS (3)
  1. TAVOR [Suspect]
     Dosage: 9 MG ONCE PO
     Route: 048
     Dates: start: 20040927, end: 20040927
  2. CODEINE [Suspect]
     Dosage: 561 MG ONCE PO
     Route: 048
     Dates: start: 20040927, end: 20040927
  3. TRAMADOLOR [Suspect]
     Dosage: 1000 MG ONCE PO
     Route: 048
     Dates: start: 20040927, end: 20040927

REACTIONS (3)
  - MULTIPLE DRUG OVERDOSE INTENTIONAL [None]
  - SOMNOLENCE [None]
  - VOMITING [None]
